FAERS Safety Report 14153865 (Version 4)
Quarter: 2018Q4

REPORT INFORMATION
  Report Type: Spontaneous
  Country: DE (occurrence: DE)
  Receive Date: 20171102
  Receipt Date: 20181016
  Transmission Date: 20190204
  Serious: Yes (Life-Threatening, Hospitalization)
  Sender: FDA-Public Use
  Company Number: DE-NAPPMUNDI-GBR-2017-0050173

PATIENT
  Age: 89 Year
  Sex: Male
  Weight: 70 kg

DRUGS (6)
  1. RAMIPRIL 1A PHARMA [Concomitant]
     Active Substance: RAMIPRIL
     Dosage: 2.5 MG, AM
     Route: 048
  2. L THYROXIN [Concomitant]
     Active Substance: LEVOTHYROXINE SODIUM
     Dosage: 50 MCG, AM
     Route: 048
  3. TAMSULOSIN                         /01280302/ [Concomitant]
     Active Substance: TAMSULOSIN HYDROCHLORIDE
     Dosage: 0.4 MG, AM
     Route: 048
  4. MST (MORPHINE SULFATE) [Suspect]
     Active Substance: MORPHINE SULFATE
     Indication: PRODUCT USED FOR UNKNOWN INDICATION
     Dosage: 10 MG, BID
     Route: 048
  5. APIXABAN [Concomitant]
     Active Substance: APIXABAN
     Dosage: 2.5 MG, BID
     Route: 048
  6. NOVAMINSULFON 1 A PHARMA [Concomitant]

REACTIONS (3)
  - Coma [Recovered/Resolved]
  - Toxicity to various agents [Recovered/Resolved]
  - Miosis [Not Recovered/Not Resolved]

NARRATIVE: CASE EVENT DATE: 20171010
